FAERS Safety Report 7126563-3 (Version None)
Quarter: 2010Q4

REPORT INFORMATION
  Report Type: 
  Country: None (occurrence: None)
  Receive Date: 20101129
  Receipt Date: 20101122
  Transmission Date: 20110411
  Serious: Yes (Death, Other)
  Sender: FDA-Public Use
  Company Number: SK-ROCHE-743664

PATIENT

DRUGS (4)
  1. PEGINTERFERON ALFA-2A [Suspect]
     Route: 065
  2. RIBAVIRIN [Suspect]
     Route: 065
  3. INTERFERON ALFA [Suspect]
     Route: 065
  4. PEGINTERFERON ALFA-2B [Suspect]
     Route: 065

REACTIONS (9)
  - ASTHENIA [None]
  - AUTOIMMUNE DISORDER [None]
  - BLOOD DISORDER [None]
  - CARDIAC DISORDER [None]
  - DEATH [None]
  - GASTROINTESTINAL HAEMORRHAGE [None]
  - HYPERSENSITIVITY [None]
  - LUNG DISORDER [None]
  - WEIGHT DECREASED [None]
